FAERS Safety Report 4733282-7 (Version None)
Quarter: 2005Q3

REPORT INFORMATION
  Report Type: 
  Country: None (occurrence: None)
  Receive Date: 20050803
  Receipt Date: 20050118
  Transmission Date: 20060218
  Serious: Yes (Death, Life-Threatening, Hospitalization, Other)
  Sender: FDA-Public Use
  Company Number: BR-BRISTOL-MYERS SQUIBB COMPANY-12829537

PATIENT
  Age: 43 Year
  Sex: Female
  Weight: 42 kg

DRUGS (28)
  1. DIDANOSINE [Suspect]
     Indication: HIV INFECTION
     Route: 048
     Dates: start: 20041004, end: 20050103
  2. CAPRAVIRINE [Suspect]
     Indication: HIV INFECTION
     Route: 048
     Dates: start: 20041004, end: 20050103
  3. KALETRA [Suspect]
     Indication: HIV INFECTION
     Dosage: 400 MG/100 MG TABLETS ^1.6 GRAMS^ TWICE DAILY
     Route: 048
     Dates: start: 20031020, end: 20050103
  4. TENOFOVIR [Suspect]
     Indication: HIV INFECTION
     Route: 048
     Dates: start: 20041004, end: 20050103
  5. LAMIVUDINE [Suspect]
     Indication: HIV INFECTION
     Route: 048
     Dates: start: 20041004, end: 20050103
  6. PREDNISONE [Concomitant]
     Route: 048
     Dates: start: 20040419
  7. THEOPHYLLINE [Concomitant]
     Route: 048
     Dates: start: 20031119, end: 20050103
  8. VITAMINS [Concomitant]
     Route: 048
     Dates: start: 20040127, end: 20050103
  9. METFORMIN HCL [Concomitant]
     Route: 048
     Dates: start: 20041129
  10. LOPERAMIDE HCL [Concomitant]
     Route: 048
     Dates: start: 20040112, end: 20050103
  11. BACTRIM [Concomitant]
     Indication: INFECTION PROPHYLAXIS
     Route: 048
     Dates: start: 19990101, end: 20050111
  12. BACTRIM [Concomitant]
     Route: 048
     Dates: start: 19990101, end: 20050111
  13. SODIUM CHLORIDE [Concomitant]
     Dosage: 03-JAN-2005 TO 04-JAN-2005, 13-JAN-2005 TO 13-JAN-2005, AND 20-JAN-2005 TO 20-JAN-2005
     Route: 042
     Dates: start: 20050103, end: 20050120
  14. RANITIDINE [Concomitant]
     Route: 042
     Dates: start: 20050103, end: 20050120
  15. METAMIZOLE SODIUM [Concomitant]
     Dosage: 03-JAN-2005 TO 16-JAN-2005, 17-JAN-2005 TO ONGOING, DISCONTINUED 20-JAN-2005
     Route: 042
     Dates: start: 20050103, end: 20050120
  16. POTASSIUM CHLORIDE [Concomitant]
     Route: 042
     Dates: start: 20050108, end: 20050108
  17. GLUCOSE [Concomitant]
     Dosage: THEARPY FROM 08-JAN-2005 TO 08-JAN-2005, THEN 14-JAN-2005 TO 14-JAN-2005
     Route: 042
     Dates: start: 20050108, end: 20050114
  18. HYDROCHLOROTHIAZIDE [Concomitant]
     Route: 042
     Dates: start: 20050108, end: 20050108
  19. DIMETICONE [Concomitant]
     Route: 048
     Dates: start: 20050109, end: 20050111
  20. FOLINIC ACID [Concomitant]
     Route: 048
     Dates: start: 20050112, end: 20050119
  21. CAPTOPRIL [Concomitant]
     Route: 048
     Dates: start: 20050113, end: 20050116
  22. CEFEPIME HCL [Concomitant]
     Route: 042
     Dates: start: 20050116, end: 20050120
  23. VANCOMYCIN [Concomitant]
     Route: 042
     Dates: start: 20050116, end: 20050116
  24. BACTRIM [Concomitant]
     Route: 042
     Dates: start: 20050103, end: 20050103
  25. ALBUTEROL SULFATE HFA [Concomitant]
     Route: 055
     Dates: start: 20040501, end: 20050103
  26. BUDESONIDE INHALER [Concomitant]
     Route: 055
     Dates: start: 20030101, end: 20050103
  27. DAPSONE [Concomitant]
     Route: 048
     Dates: start: 20050112, end: 20050120
  28. HEPARIN [Concomitant]
     Route: 042
     Dates: start: 20050111, end: 20050113

REACTIONS (11)
  - ANOREXIA [None]
  - APHASIA [None]
  - DIARRHOEA [None]
  - DISORIENTATION [None]
  - METABOLIC ACIDOSIS [None]
  - NAUSEA [None]
  - PARESIS [None]
  - RENAL FAILURE [None]
  - SEPSIS [None]
  - VOMITING [None]
  - WEIGHT DECREASED [None]
